FAERS Safety Report 10068915 (Version 1)
Quarter: 2014Q2

REPORT INFORMATION
  Report Type: Spontaneous
  Country: GB (occurrence: GB)
  Receive Date: 20140409
  Receipt Date: 20140409
  Transmission Date: 20141212
  Serious: Yes (Life-Threatening, Other)
  Sender: FDA-Public Use
  Company Number: GB-PFIZER INC-2014096588

PATIENT
  Age: 42 Year
  Sex: Female
  Weight: 73.93 kg

DRUGS (5)
  1. PREGABALIN [Suspect]
     Indication: DEPRESSION SUICIDAL
     Dosage: 300 MG, UNK
     Route: 048
     Dates: start: 20131101
  2. CLONAZEPAM [Concomitant]
     Dosage: UNK
  3. DULOXETINE [Concomitant]
     Dosage: UNK
  4. MIRTAZAPINE [Concomitant]
     Dosage: UNK
  5. QUETIAPINE [Concomitant]
     Dosage: UNK

REACTIONS (3)
  - Medication error [Unknown]
  - Suicide attempt [Not Recovered/Not Resolved]
  - Suicidal ideation [Not Recovered/Not Resolved]
